FAERS Safety Report 8156188-2 (Version None)
Quarter: 2012Q1

REPORT INFORMATION
  Report Type: 
  Country: None (occurrence: None)
  Receive Date: 20120222
  Receipt Date: 20120208
  Transmission Date: 20120608
  Serious: Yes (Hospitalization)
  Sender: FDA-Public Use
  Company Number: FR-MYLANLABS-2012S1003010

PATIENT
  Age: 50 Year
  Sex: Male

DRUGS (8)
  1. ASPIRIN [Concomitant]
     Dosage: 75 MG/DAY
     Route: 065
  2. HEPARIN [Concomitant]
     Dosage: BY SYRINGE DRIVER
     Route: 065
  3. CLOPIDOGREL [Interacting]
     Dosage: 75 MG/DAY
     Route: 048
  4. LAMOTRIGINE [Concomitant]
     Indication: CONVULSION
     Route: 065
  5. CLOPIDOGREL [Interacting]
     Indication: ACUTE MYOCARDIAL INFARCTION
     Route: 048
  6. METOPROLOL [Concomitant]
     Dosage: 100 MG/DAY
     Route: 065
  7. SIMVASTATIN [Suspect]
     Dosage: 40 MG/DAY
     Route: 065
  8. ENALAPRIL MALEATE [Concomitant]
     Dosage: 20 MG/DAY
     Route: 065

REACTIONS (7)
  - PARAESTHESIA ORAL [None]
  - DRUG INTERACTION [None]
  - RENAL FAILURE ACUTE [None]
  - HAEMOLYSIS [None]
  - DELIRIUM [None]
  - THROMBOTIC MICROANGIOPATHY [None]
  - THROMBOTIC THROMBOCYTOPENIC PURPURA [None]
